FAERS Safety Report 5883822-X (Version None)
Quarter: 2008Q3

REPORT INFORMATION
  Report Type: 
  Country: None (occurrence: None)
  Receive Date: 20080915
  Receipt Date: 20080909
  Transmission Date: 20090109
  Serious: Yes (Death, Other)
  Sender: FDA-Public Use
  Company Number: CA-ABBOTT-08P-028-0442124-00

PATIENT
  Sex: Male

DRUGS (4)
  1. HUMIRA [Suspect]
     Indication: RHEUMATOID ARTHRITIS
     Dosage: 40MG WEEKLY, ORDERED BI-WEEKLY
     Route: 058
     Dates: start: 20070401
  2. HUMIRA [Suspect]
     Route: 030
  3. METHOTREXATE [Suspect]
     Indication: RHEUMATOID ARTHRITIS
     Dosage: WEEKLY
  4. LEFLUNOMIDE [Suspect]
     Indication: RHEUMATOID ARTHRITIS
     Dosage: WEEKLY

REACTIONS (5)
  - BONE DISORDER [None]
  - DEPRESSION [None]
  - INJURY [None]
  - NEOPLASM MALIGNANT [None]
  - SUICIDE ATTEMPT [None]
